FAERS Safety Report 5321522-5 (Version None)
Quarter: 2007Q2

REPORT INFORMATION
  Report Type: 
  Country: None (occurrence: None)
  Receive Date: 20070510
  Receipt Date: 20070502
  Transmission Date: 20071010
  Serious: Yes (Other)
  Sender: FDA-Public Use
  Company Number: US-ASTRAZENECA-2007UW05625

PATIENT
  Age: 493 Month
  Sex: Female

DRUGS (33)
  1. SEROQUEL [Suspect]
     Indication: BIPOLAR DISORDER
     Route: 048
     Dates: start: 20050127, end: 20060130
  2. SEROQUEL [Suspect]
     Indication: DEPRESSION
     Route: 048
     Dates: start: 20050127, end: 20060130
  3. SEROQUEL [Suspect]
     Indication: SCHIZOPHRENIA
     Route: 048
     Dates: start: 20050127, end: 20060130
  4. SEROQUEL [Suspect]
     Route: 048
     Dates: start: 20050124, end: 20050325
  5. SEROQUEL [Suspect]
     Route: 048
     Dates: start: 20050124, end: 20050325
  6. SEROQUEL [Suspect]
     Route: 048
     Dates: start: 20050124, end: 20050325
  7. SEROQUEL [Suspect]
     Route: 048
     Dates: start: 20060117, end: 20060313
  8. SEROQUEL [Suspect]
     Route: 048
     Dates: start: 20060117, end: 20060313
  9. SEROQUEL [Suspect]
     Route: 048
     Dates: start: 20060117, end: 20060313
  10. RISPERDAL [Suspect]
     Indication: BIPOLAR DISORDER
     Dates: start: 20050121, end: 20050322
  11. RISPERDAL [Suspect]
     Indication: DEPRESSION
     Dates: start: 20050121, end: 20050322
  12. RISPERDAL [Suspect]
     Indication: SCHIZOPHRENIA
     Dates: start: 20050121, end: 20050322
  13. RISPERDAL [Suspect]
     Dates: start: 20050402, end: 20050502
  14. RISPERDAL [Suspect]
     Dates: start: 20050402, end: 20050502
  15. RISPERDAL [Suspect]
     Dates: start: 20050402, end: 20050502
  16. RISPERDAL [Suspect]
     Dates: start: 20050609, end: 20050807
  17. RISPERDAL [Suspect]
     Dates: start: 20050609, end: 20050807
  18. RISPERDAL [Suspect]
     Dates: start: 20050609, end: 20050807
  19. RISPERDAL [Suspect]
     Dates: start: 20051003, end: 20051103
  20. RISPERDAL [Suspect]
     Dates: start: 20051003, end: 20051103
  21. RISPERDAL [Suspect]
     Dates: start: 20051003, end: 20051103
  22. RISPERDAL [Suspect]
     Dates: start: 20060117, end: 20060313
  23. RISPERDAL [Suspect]
     Dates: start: 20060117, end: 20060313
  24. RISPERDAL [Suspect]
     Dates: start: 20060117, end: 20060313
  25. RISPERDAL [Suspect]
     Dates: start: 20060407, end: 20060507
  26. RISPERDAL [Suspect]
     Dates: start: 20060407, end: 20060507
  27. RISPERDAL [Suspect]
     Dates: start: 20060407, end: 20060507
  28. RISPERDAL [Suspect]
     Dates: start: 20060524, end: 20060720
  29. RISPERDAL [Suspect]
     Dates: start: 20060524, end: 20060720
  30. RISPERDAL [Suspect]
     Dates: start: 20060524, end: 20060720
  31. RISPERDAL [Suspect]
     Dates: start: 20060807, end: 20070105
  32. RISPERDAL [Suspect]
     Dates: start: 20060807, end: 20070105
  33. RISPERDAL [Suspect]
     Dates: start: 20060807, end: 20070105

REACTIONS (2)
  - DIABETES MELLITUS INSULIN-DEPENDENT [None]
  - NEUROPATHY [None]
